FAERS Safety Report 8817717 (Version 1)
Quarter: 2012Q4

REPORT INFORMATION
  Report Type: 
  Country: US (occurrence: US)
  Receive Date: 20121001
  Receipt Date: 20121001
  Transmission Date: 20130627
  Serious: Yes (Other)
  Sender: FDA-Public Use
  Company Number: US-PFIZER INC-2012240808

PATIENT
  Age: 51 Year
  Sex: Female
  Weight: 58.96 kg

DRUGS (5)
  1. PHENYTOIN SODIUM [Suspect]
     Indication: CONVULSION
     Dosage: UNK, 3x/day
     Route: 048
     Dates: start: 201208
  2. DIAZEPAM [Concomitant]
     Indication: CONVULSION
     Dosage: 5 mg, 3x/day
  3. VITAMIN D [Concomitant]
     Dosage: UNK
  4. VITAMIN B12 [Concomitant]
     Dosage: UNK
  5. ASPIRIN [Concomitant]
     Indication: HEADACHE
     Dosage: UNK

REACTIONS (3)
  - Amnesia [Unknown]
  - Confusional state [Unknown]
  - Drug ineffective [Unknown]
